FAERS Safety Report 6410700-X (Version None)
Quarter: 2009Q4

REPORT INFORMATION
  Report Type: 
  Country: None (occurrence: None)
  Receive Date: 20091022
  Receipt Date: 20091012
  Transmission Date: 20100525
  Serious: Yes (Hospitalization)
  Sender: FDA-Public Use
  Company Number: DE-NOVOPROD-292746

PATIENT
  Sex: Male
  Weight: 41 kg

DRUGS (2)
  1. NORDITROPIN NORDIFLEX [Suspect]
     Indication: BODY HEIGHT BELOW NORMAL
     Dosage: 1.4 MG, QD
     Route: 058
     Dates: start: 20001227
  2. FEMARA [Suspect]
     Indication: BODY HEIGHT BELOW NORMAL
     Dosage: 1.25 MG, QD
     Route: 048
     Dates: start: 20090518

REACTIONS (2)
  - TENDON RUPTURE [None]
  - TIBIA FRACTURE [None]
